FAERS Safety Report 9102937 (Version 1)
Quarter: 2013Q1

REPORT INFORMATION
  Report Type: Spontaneous
  Country: NZ (occurrence: NZ)
  Receive Date: 20130219
  Receipt Date: 20130219
  Transmission Date: 20140127
  Serious: Yes (Other)
  Sender: FDA-Public Use
  Company Number: NZ-PFIZER INC-2013061502

PATIENT
  Age: 55 Year
  Sex: Male

DRUGS (4)
  1. DILTIAZEM HCL [Suspect]
     Route: 048
  2. CISPLATIN [Suspect]
  3. MORPHINE [Suspect]
     Dosage: UNK
     Route: 048
  4. GEMCITABINE [Suspect]
     Route: 065

REACTIONS (5)
  - Myelitis [Unknown]
  - Pleural effusion [Unknown]
  - Dyspnoea [Unknown]
  - Fatigue [Unknown]
  - Disease progression [Unknown]
